FAERS Safety Report 6294560-6 (Version None)
Quarter: 2009Q3

REPORT INFORMATION
  Report Type: 
  Country: None (occurrence: None)
  Receive Date: 20090803
  Receipt Date: 20090724
  Transmission Date: 20100115
  Serious: Yes (Life-Threatening, Hospitalization, Other)
  Sender: FDA-Public Use
  Company Number: JP-PFIZER INC-2009216853

PATIENT
  Age: 78 Year

DRUGS (6)
  1. NORVASC [Suspect]
     Indication: HYPERTENSION
     Dosage: 5 MG, 1X/DAY
     Route: 048
  2. FLIVAS [Suspect]
     Indication: BENIGN PROSTATIC HYPERPLASIA
     Route: 048
     Dates: start: 20071016
  3. DIOVANE [Concomitant]
     Dosage: UNK
     Route: 048
     Dates: start: 20050812
  4. ODYNE [Concomitant]
     Dosage: UNK
     Route: 048
     Dates: start: 20090327
  5. URALYT [Concomitant]
     Dosage: UNK
     Route: 048
     Dates: start: 20090424
  6. EUGLUCON [Concomitant]
     Route: 048
     Dates: start: 20051202, end: 20090516

REACTIONS (1)
  - ATRIOVENTRICULAR BLOCK COMPLETE [None]
